FAERS Safety Report 9682910 (Version 2)
Quarter: 2013Q4

REPORT INFORMATION
  Report Type: Report from Study
  Country: US (occurrence: US)
  Receive Date: 20131112
  Receipt Date: 20131115
  Transmission Date: 20140711
  Serious: Yes (Life-Threatening, Hospitalization, Other)
  Sender: FDA-Public Use
  Company Number: US-ASTELLAS-2013US011527

PATIENT
  Age: 53 Year
  Sex: Female
  Weight: 89 kg

DRUGS (1)
  1. ERLOTINIB TABLET [Suspect]
     Indication: ACUTE MYELOID LEUKAEMIA
     Dosage: UNK
     Route: 065
     Dates: start: 2012, end: 20131028

REACTIONS (17)
  - Off label use [Unknown]
  - Pneumonia fungal [Unknown]
  - Hypomagnesaemia [Unknown]
  - Anaemia [Unknown]
  - Thrombocytopenia [Unknown]
  - Pleural effusion [Unknown]
  - Acute myeloid leukaemia [Unknown]
  - Pneumonia pseudomonal [Unknown]
  - Septic shock [Unknown]
  - Pneumonia [Unknown]
  - Colitis [Unknown]
  - Colitis [Unknown]
  - Lymphoedema [Not Recovered/Not Resolved]
  - Cellulitis [Unknown]
  - Gastric ulcer [Unknown]
  - Skin ulcer [Not Recovered/Not Resolved]
  - Arthralgia [Unknown]
